FAERS Safety Report 8327741-8 (Version None)
Quarter: 2012Q2

REPORT INFORMATION
  Report Type: 
  Country: None (occurrence: None)
  Receive Date: 20120502
  Receipt Date: 20120430
  Transmission Date: 20120825
  Serious: No
  Sender: FDA-Public Use
  Company Number: US-PFIZER INC-2012106346

PATIENT
  Sex: Male

DRUGS (3)
  1. NIFEDIPINE [Suspect]
     Indication: HYPERTENSION
     Dosage: 30 MG, 1X/DAY
     Route: 048
     Dates: start: 20120101
  2. ATENOLOL [Concomitant]
     Dosage: 25 MG, 1X/DAY
  3. PRAVACHOL [Concomitant]
     Dosage: 20 MG, 1X/DAY

REACTIONS (3)
  - BLOOD CHOLESTEROL INCREASED [None]
  - DRUG EFFECT DECREASED [None]
  - HYPERTENSION [None]
